FAERS Safety Report 9399753 (Version 4)
Quarter: 2014Q2

REPORT INFORMATION
  Report Type: Spontaneous
  Country: US (occurrence: US)
  Receive Date: 20130715
  Receipt Date: 20140625
  Transmission Date: 20141212
  Serious: Yes (Hospitalization)
  Sender: FDA-Public Use
  Company Number: US-BAYER-2013-083244

PATIENT
  Age: 22 Year
  Sex: Female
  Weight: 95 kg

DRUGS (3)
  1. MIRENA [Suspect]
     Indication: CONTRACEPTION
     Dosage: 20 MCG/24HR, CONT
     Route: 015
     Dates: start: 200712, end: 20110721
  2. MACROBID [Concomitant]
     Dosage: UNK
     Route: 048
     Dates: start: 20110511
  3. PRENATAL VITAMINS [VIT C,B5,B12,D2,B3,B6,RETINOL PALMIT,B2,B1 MONO [Concomitant]
     Dosage: UNK
     Route: 048
     Dates: start: 20110511

REACTIONS (13)
  - Embedded device [Not Recovered/Not Resolved]
  - Pregnancy with contraceptive device [None]
  - Pulmonary embolism [None]
  - Drug ineffective [None]
  - Pain [Not Recovered/Not Resolved]
  - Injury [None]
  - Medical device discomfort [Not Recovered/Not Resolved]
  - Activities of daily living impaired [Not Recovered/Not Resolved]
  - Vomiting [Not Recovered/Not Resolved]
  - Abasia [Not Recovered/Not Resolved]
  - Coordination abnormal [Not Recovered/Not Resolved]
  - General physical health deterioration [Not Recovered/Not Resolved]
  - Medical device pain [None]
